FAERS Safety Report 4996778-9 (Version None)
Quarter: 2006Q2

REPORT INFORMATION
  Report Type: 
  Country: None (occurrence: None)
  Receive Date: 20060509
  Receipt Date: 20060208
  Transmission Date: 20061013
  Serious: Yes (Death, Hospitalization)
  Sender: FDA-Public Use
  Company Number: US-MERCK-0602USA02564

PATIENT
  Age: 93 Year
  Sex: Female

DRUGS (1)
  1. VIOXX [Suspect]
     Indication: OSTEOARTHRITIS
     Route: 048
     Dates: start: 20000202

REACTIONS (27)
  - ADVERSE DRUG REACTION [None]
  - ANAEMIA [None]
  - ANGINA PECTORIS [None]
  - ATRIAL FIBRILLATION [None]
  - BRAIN STEM INFARCTION [None]
  - CARDIAC FAILURE CONGESTIVE [None]
  - CARDIOMEGALY [None]
  - CARDIOMYOPATHY [None]
  - CEREBROVASCULAR ACCIDENT [None]
  - COAGULOPATHY [None]
  - DRUG HYPERSENSITIVITY [None]
  - HAEMATURIA [None]
  - HYPOKALAEMIA [None]
  - HYPONATRAEMIA [None]
  - KYPHOSCOLIOSIS [None]
  - LOSS OF CONSCIOUSNESS [None]
  - MOOD ALTERED [None]
  - RENAL CYST [None]
  - RENAL FAILURE [None]
  - RENAL FAILURE ACUTE [None]
  - RENAL FAILURE CHRONIC [None]
  - RESPIRATORY ARREST [None]
  - SICK SINUS SYNDROME [None]
  - SYNCOPE [None]
  - SYNOVIAL CYST [None]
  - URINARY TRACT INFECTION [None]
  - VENTRICULAR DYSFUNCTION [None]
